FAERS Safety Report 10474629 (Version 1)
Quarter: 2014Q3

REPORT INFORMATION
  Report Type: Spontaneous
  Country: GB (occurrence: GB)
  Receive Date: 20140925
  Receipt Date: 20140925
  Transmission Date: 20150326
  Serious: Yes (Other)
  Sender: FDA-Public Use
  Company Number: PHHY2014GB122344

PATIENT
  Age: 71 Year
  Sex: Male
  Weight: 96.4 kg

DRUGS (4)
  1. PARACETAMOL [Concomitant]
     Active Substance: ACETAMINOPHEN
     Dosage: TAKING FOR OVER 3 YEARS AND STILL TAKING.
  2. IBUPROFEN. [Concomitant]
     Active Substance: IBUPROFEN
     Dosage: TAKING FOR OVER 3 YEARS AND STILL TAKING.
  3. AMLODIPINE [Suspect]
     Active Substance: AMLODIPINE BESYLATE
     Indication: HYPERTENSION
     Dosage: 5 MG, UNK
     Dates: start: 20140804, end: 20140819
  4. LISINOPRIL. [Suspect]
     Active Substance: LISINOPRIL
     Indication: HYPERTENSION
     Dosage: 30 MG, UNK
     Dates: start: 20130802, end: 20140803

REACTIONS (2)
  - Hypoaesthesia [Recovered/Resolved]
  - Balance disorder [Recovered/Resolved]
